FAERS Safety Report 6361612-1 (Version None)
Quarter: 2009Q3

REPORT INFORMATION
  Report Type: 
  Country: None (occurrence: None)
  Receive Date: 20090918
  Receipt Date: 20090910
  Transmission Date: 20100115
  Serious: Yes (Hospitalization)
  Sender: FDA-Public Use
  Company Number: PHHY2009CA39050

PATIENT
  Sex: Male

DRUGS (1)
  1. EXJADE [Suspect]
     Indication: SYSTEMIC MASTOCYTOSIS
     Dosage: UNK
     Dates: start: 20090820

REACTIONS (1)
  - MACROCYTOSIS [None]
